FAERS Safety Report 24324703 (Version 5)
Quarter: 2025Q1

REPORT INFORMATION
  Report Type: Report from Study
  Country: US (occurrence: US)
  Receive Date: 20240916
  Receipt Date: 20250325
  Transmission Date: 20250409
  Serious: Yes (Other)
  Sender: SUNOVION
  Company Number: US-SUMITOMO PHARMA SWITZERLAND GMBH-2024SPA002200

PATIENT

DRUGS (3)
  1. ORGOVYX [Suspect]
     Active Substance: RELUGOLIX
     Indication: Prostate cancer
     Dosage: 360 MG, SINGLE
     Route: 048
     Dates: start: 20240815, end: 20240815
  2. ORGOVYX [Suspect]
     Active Substance: RELUGOLIX
     Dosage: 120 MG, ONCE QD
     Route: 048
     Dates: start: 20240816
  3. VIAGRA [Concomitant]
     Active Substance: SILDENAFIL CITRATE
     Route: 065

REACTIONS (9)
  - Prostatic operation [Unknown]
  - Tooth extraction [Unknown]
  - Nodular rash [Unknown]
  - Urethral disorder [Unknown]
  - Pruritus [Unknown]
  - Gait disturbance [Unknown]
  - Hyperhidrosis [Unknown]
  - Arthritis [Unknown]
  - Myalgia [Unknown]
